FAERS Safety Report 13277473 (Version 3)
Quarter: 2017Q2

REPORT INFORMATION
  Report Type: Spontaneous
  Country: JP (occurrence: JP)
  Receive Date: 20170228
  Receipt Date: 20170613
  Transmission Date: 20170830
  Serious: Yes (Hospitalization)
  Sender: FDA-Public Use
  Company Number: JP-UCBSA-2017006834

PATIENT
  Age: 18 Year
  Sex: Male

DRUGS (9)
  1. E KEPPRA [Suspect]
     Active Substance: LEVETIRACETAM
     Indication: TEMPORAL LOBE EPILEPSY
     Dosage: UNK
     Route: 048
     Dates: start: 2010
  2. LAMICTAL [Suspect]
     Active Substance: LAMOTRIGINE
     Indication: PRODUCT USED FOR UNKNOWN INDICATION
     Dosage: 25 MG
     Route: 048
     Dates: start: 20150410, end: 2015
  3. E KEPPRA [Suspect]
     Active Substance: LEVETIRACETAM
     Dosage: 2000 MG DAILY
     Route: 048
     Dates: start: 20160325
  4. E KEPPRA [Suspect]
     Active Substance: LEVETIRACETAM
     Dosage: 3000 MG  DAILY
     Route: 048
     Dates: start: 20141017
  5. SELENICA-R [Concomitant]
     Active Substance: VALPROATE SODIUM
     Dosage: 200 MG
     Route: 048
     Dates: start: 20140808
  6. LAMICTAL [Suspect]
     Active Substance: LAMOTRIGINE
     Dosage: 200MG
     Route: 048
     Dates: start: 20150717
  7. E KEPPRA [Suspect]
     Active Substance: LEVETIRACETAM
     Dosage: 1000MG DAILY DOSE
     Route: 048
     Dates: start: 2014, end: 2014
  8. SELENICA-R [Concomitant]
     Active Substance: VALPROATE SODIUM
     Dosage: 400 MG
     Route: 048
  9. SELENICA-R [Concomitant]
     Active Substance: VALPROATE SODIUM
     Dosage: UNK
     Route: 048
     Dates: start: 20150109

REACTIONS (3)
  - Blood creatine phosphokinase increased [Recovered/Resolved]
  - Hepatic function abnormal [Recovered/Resolved]
  - Drug ineffective [Unknown]

NARRATIVE: CASE EVENT DATE: 20170216
